FAERS Safety Report 13390317 (Version 1)
Quarter: 2017Q1

REPORT INFORMATION
  Report Type: Spontaneous
  Country: US (occurrence: US)
  Receive Date: 20170330
  Receipt Date: 20170330
  Transmission Date: 20170429
  Serious: Yes (Hospitalization)
  Sender: FDA-Public Use
  Company Number: None

PATIENT
  Age: 67 Year
  Sex: Male
  Weight: 104.6 kg

DRUGS (1)
  1. CLOZAPINE (MYLAN) [Suspect]
     Active Substance: CLOZAPINE
     Indication: SCHIZOAFFECTIVE DISORDER
     Dosage: PM
     Route: 048
     Dates: start: 20151204, end: 20160204

REACTIONS (3)
  - Sedation [None]
  - Pneumonia [None]
  - Agranulocytosis [None]

NARRATIVE: CASE EVENT DATE: 20160212
